FAERS Safety Report 6997365-3 (Version None)
Quarter: 2010Q3

REPORT INFORMATION
  Report Type: 
  Country: None (occurrence: None)
  Receive Date: 20100918
  Receipt Date: 20091112
  Transmission Date: 20110219
  Serious: No
  Sender: FDA-Public Use
  Company Number: US-WYE-H11542509

PATIENT
  Sex: Female
  Weight: 59.02 kg

DRUGS (2)
  1. PRISTIQ [Suspect]
     Indication: DEPRESSION
     Route: 048
     Dates: start: 20090818, end: 20090101
  2. PRISTIQ [Suspect]
     Dosage: WEANED OFF
     Route: 048
     Dates: start: 20090101, end: 20091029

REACTIONS (2)
  - CONSTIPATION [None]
  - INSOMNIA [None]
